FAERS Safety Report 25589992 (Version 1)
Quarter: 2025Q3

REPORT INFORMATION
  Report Type: Spontaneous
  Country: US (occurrence: US)
  Receive Date: 20250722
  Receipt Date: 20250722
  Transmission Date: 20251021
  Serious: Yes (Other)
  Sender: BAYER HEALTHCARE LLC
  Company Number: US-BAYER-2025A095523

PATIENT
  Age: 79 Year
  Sex: Male

DRUGS (11)
  1. BAYER LOW DOSE [Suspect]
     Active Substance: ASPIRIN
     Indication: Anticoagulant therapy
  2. BAYER LOW DOSE [Suspect]
     Active Substance: ASPIRIN
     Indication: Coronary artery disease
  3. CLOPIDOGREL [Concomitant]
     Active Substance: CLOPIDOGREL BISULFATE
  4. APIXABAN [Concomitant]
     Active Substance: APIXABAN
     Indication: Coronary artery disease
  5. PANTOPRAZOLE [Concomitant]
     Active Substance: PANTOPRAZOLE
  6. ATORVASTATIN [Concomitant]
     Active Substance: ATORVASTATIN
  7. DOFETILIDE [Concomitant]
     Active Substance: DOFETILIDE
  8. METOPROLOL SUCCINATE [Concomitant]
     Active Substance: METOPROLOL SUCCINATE
  9. FUROSEMIDE [Concomitant]
     Active Substance: FUROSEMIDE
  10. GABAPENTIN [Concomitant]
     Active Substance: GABAPENTIN
  11. NITROGLYCERIN [Concomitant]
     Active Substance: NITROGLYCERIN

REACTIONS (4)
  - Gastrointestinal haemorrhage [None]
  - Gastritis [None]
  - Gastric ulcer [None]
  - Iron deficiency anaemia [None]
